FAERS Safety Report 5414086-9 (Version None)
Quarter: 2007Q3

REPORT INFORMATION
  Report Type: 
  Country: None (occurrence: None)
  Receive Date: 20070814
  Receipt Date: 20070806
  Transmission Date: 20080115
  Serious: Yes (Death)
  Sender: FDA-Public Use
  Company Number: US-ELI_LILLY_AND_COMPANY-US200707000682

PATIENT
  Age: 59 Year
  Sex: Male

DRUGS (13)
  1. BYETTA [Suspect]
     Indication: DIABETES MELLITUS
     Dosage: 5 UG, UNKNOWN
     Route: 058
     Dates: start: 20060701, end: 20060801
  2. BYETTA [Suspect]
     Dosage: 10 UG, UNKNOWN
     Route: 058
     Dates: start: 20060801, end: 20070301
  3. LANTUS [Concomitant]
     Indication: DIABETES MELLITUS
     Dosage: 6 U, UNKNOWN
     Dates: start: 20070202
  4. HUMALOG [Concomitant]
     Indication: DIABETES MELLITUS
     Dosage: UNK, UNKNOWN
  5. AVANDIA [Concomitant]
     Indication: DIABETES MELLITUS
     Dosage: 8 UNK, UNKNOWN
     Dates: start: 20040811
  6. METFORMIN HCL [Concomitant]
     Indication: DIABETES MELLITUS
     Dosage: 1000 UNK, 2/D
     Dates: start: 19990526
  7. LEXAPRO [Concomitant]
     Indication: DEPRESSION
     Dosage: 10 UNK, DAILY (1/D)
     Route: 048
     Dates: start: 20060613
  8. ALTACE [Concomitant]
     Indication: HYPERTENSION
     Dosage: 10 UNK, DAILY (1/D)
     Route: 048
     Dates: start: 19940506
  9. HYDROCHLOROTHIAZIDE [Concomitant]
     Indication: HYPERTENSION
     Dosage: 12.5 UNK, UNK
     Route: 048
     Dates: start: 19940913
  10. HYTRIN [Concomitant]
     Indication: BENIGN PROSTATIC HYPERPLASIA
     Dosage: 10 MG, DAILY (1/D)
     Dates: start: 19970506, end: 20040224
  11. ZOCOR [Concomitant]
     Indication: BLOOD CHOLESTEROL INCREASED
     Dosage: 20 UNK, UNKNOWN
     Route: 048
     Dates: start: 20000405
  12. DYNACIRC [Concomitant]
     Indication: HYPERTENSION
     Dosage: 10 UNK, UNKNOWN
     Route: 048
     Dates: start: 20040224
  13. MORPHINE [Concomitant]
     Dosage: UNK, UNKNOWN
     Route: 042
     Dates: start: 20070101

REACTIONS (2)
  - PANCREATIC CARCINOMA [None]
  - RESPIRATORY FAILURE [None]
